FAERS Safety Report 24530064 (Version 1)
Quarter: 2024Q4

REPORT INFORMATION
  Report Type: Spontaneous
  Country: US (occurrence: None)
  Receive Date: 20241019
  Receipt Date: 20241019
  Transmission Date: 20250115
  Serious: Yes (Other)
  Sender: Public
  Company Number: None

PATIENT
  Age: 12 Year
  Sex: Female
  Weight: 54 kg

DRUGS (1)
  1. MONTELUKAST [Suspect]
     Active Substance: MONTELUKAST
     Indication: Nasal congestion
     Dates: start: 20241016

REACTIONS (3)
  - Panic attack [None]
  - Anxiety [None]
  - Hallucination [None]

NARRATIVE: CASE EVENT DATE: 20241017
